FAERS Safety Report 25387472 (Version 1)
Quarter: 2025Q2

REPORT INFORMATION
  Report Type: Report from Study
  Country: US (occurrence: US)
  Receive Date: 20250602
  Receipt Date: 20250602
  Transmission Date: 20250717
  Serious: No
  Sender: MALLINCKRODT
  Company Number: US-MALLINCKRODT-MNK202502520

PATIENT
  Age: 51 Year
  Sex: Male

DRUGS (12)
  1. CORTICOTROPIN [Suspect]
     Active Substance: CORTICOTROPIN
     Indication: Nephrotic syndrome
     Route: 058
     Dates: start: 20250411
  2. TACROLIMUS [Concomitant]
     Active Substance: TACROLIMUS
  3. RITUXAN [Concomitant]
     Active Substance: RITUXIMAB
  4. FENOFIBRATE [Concomitant]
     Active Substance: FENOFIBRATE
  5. PECTIN [Concomitant]
     Active Substance: PECTIN
  6. EZETIMIBE [Concomitant]
     Active Substance: EZETIMIBE
  7. ATORVASTATIN [Concomitant]
     Active Substance: ATORVASTATIN
  8. FARXIGA [Concomitant]
     Active Substance: DAPAGLIFLOZIN PROPANEDIOL
  9. LOSARTAN [Concomitant]
     Active Substance: LOSARTAN
  10. ALPRENOLOL [Concomitant]
     Active Substance: ALPRENOLOL
  11. CARVEDILOL [Concomitant]
     Active Substance: CARVEDILOL
  12. VITAMIN D3 [Concomitant]
     Active Substance: CHOLECALCIFEROL

REACTIONS (11)
  - Brain fog [Unknown]
  - Sympathomimetic effect [Unknown]
  - Weight fluctuation [Unknown]
  - Chest pain [Unknown]
  - Panic reaction [Unknown]
  - Insomnia [Not Recovered/Not Resolved]
  - Fatigue [Unknown]
  - Increased appetite [Unknown]
  - Swelling face [Unknown]
  - Abdominal distension [Unknown]
  - Cushingoid [Unknown]

NARRATIVE: CASE EVENT DATE: 20250401
